FAERS Safety Report 5390409-4 (Version None)
Quarter: 2007Q3

REPORT INFORMATION
  Report Type: 
  Country: None (occurrence: None)
  Receive Date: 20070718
  Receipt Date: 20061106
  Transmission Date: 20080115
  Serious: No
  Sender: FDA-Public Use
  Company Number: US-KINGPHARMUSA00001-K200601408

PATIENT

DRUGS (2)
  1. LEVOXYL [Suspect]
     Indication: THYROID DISORDER
     Dosage: 500 MCG, QD
     Route: 048
     Dates: start: 20050101
  2. SUDAFED 12 HOUR [Suspect]
     Dosage: 1 CAPLET, QD, PRN
     Route: 048
     Dates: end: 20051201

REACTIONS (4)
  - DIZZINESS [None]
  - FEELING ABNORMAL [None]
  - INSOMNIA [None]
  - RESTLESSNESS [None]
